FAERS Safety Report 6019759-5 (Version None)
Quarter: 2008Q4

REPORT INFORMATION
  Report Type: 
  Country: None (occurrence: None)
  Receive Date: 20081224
  Receipt Date: 20081211
  Transmission Date: 20090506
  Serious: Yes (Hospitalization)
  Sender: FDA-Public Use
  Company Number: SE-GENENTECH-273207

PATIENT
  Sex: Female

DRUGS (7)
  1. BEVACIZUMAB [Suspect]
     Indication: BREAST CANCER
     Dosage: 1200 MG, Q3W
     Route: 042
     Dates: start: 20081117
  2. EPIRUBICIN [Suspect]
     Indication: BREAST CANCER
     Dosage: 170 MG, Q3W
     Route: 042
     Dates: start: 20081117
  3. FLUOROURACIL [Suspect]
     Indication: BREAST CANCER
     Dosage: 1100 MG, Q3W
     Route: 042
     Dates: start: 20081117
  4. CYCLOPHOSPHAMIDE [Suspect]
     Indication: BREAST CANCER
     Dosage: 1100 MG, Q3W
     Route: 042
     Dates: start: 20081117
  5. LEVOTHYROXINE [Concomitant]
     Indication: DRUG USE FOR UNKNOWN INDICATION
     Dosage: UNK
     Dates: start: 19941201
  6. CETIRIZINE HYDROCHLORIDE [Concomitant]
     Indication: DRUG USE FOR UNKNOWN INDICATION
     Dosage: UNK
     Dates: start: 19860101
  7. PANTOPRAZOLE [Concomitant]
     Indication: DRUG USE FOR UNKNOWN INDICATION
     Dosage: UNK
     Dates: start: 19930101

REACTIONS (2)
  - DIVERTICULITIS [None]
  - NEUTROPENIC INFECTION [None]
